FAERS Safety Report 6381495-3 (Version None)
Quarter: 2009Q3

REPORT INFORMATION
  Report Type: 
  Country: None (occurrence: None)
  Receive Date: 20090924
  Receipt Date: 20090914
  Transmission Date: 20100115
  Serious: Yes (Death)
  Sender: FDA-Public Use
  Company Number: AE-2009-200

PATIENT
  Age: 69 Year
  Sex: Female

DRUGS (11)
  1. METFORMIN HCL [Suspect]
     Dosage: ORAL
     Route: 048
  2. SERTRALINE HCL [Concomitant]
  3. NIFEDIPINE [Concomitant]
  4. GLIPIZIDE [Concomitant]
  5. GLYBURIDE [Concomitant]
  6. MECLIZINE [Concomitant]
  7. BACLOFEN [Concomitant]
  8. CLONIDINE [Concomitant]
  9. METOPROLOL [Concomitant]
  10. ENALAPRIL MALEATE [Concomitant]
  11. PRAVASTATIN [Concomitant]

REACTIONS (9)
  - DRUG TOXICITY [None]
  - HAEMODIALYSIS [None]
  - HYPOGLYCAEMIA [None]
  - HYPOTENSION [None]
  - LACTIC ACIDOSIS [None]
  - PUPIL FIXED [None]
  - RENAL FAILURE [None]
  - SEPSIS [None]
  - UNRESPONSIVE TO STIMULI [None]
